FAERS Safety Report 6261101-9 (Version None)
Quarter: 2009Q3

REPORT INFORMATION
  Report Type: 
  Country: None (occurrence: None)
  Receive Date: 20090709
  Receipt Date: 20081104
  Transmission Date: 20100115
  Serious: No
  Sender: FDA-Public Use
  Company Number: US-KINGPHARMUSA00001-K200801270

PATIENT
  Age: 56 Year
  Sex: Female

DRUGS (4)
  1. LEVOXYL [Suspect]
     Indication: AUTOIMMUNE THYROIDITIS
     Dosage: 75 MCG, QD
     Route: 048
     Dates: start: 20010101
  2. LEVOXYL [Suspect]
     Dosage: 50 MCG, QD
     Route: 048
  3. LEVOXYL [Suspect]
     Dosage: 75 MCG, QD
     Route: 048
  4. LEVOXYL [Suspect]
     Dosage: 50 MCG, QD
     Route: 048
     Dates: start: 20081028

REACTIONS (9)
  - ALOPECIA [None]
  - DRUG INEFFECTIVE [None]
  - ENERGY INCREASED [None]
  - FATIGUE [None]
  - HYPOTHYROIDISM [None]
  - MYALGIA [None]
  - NECK PAIN [None]
  - ONYCHOCLASIS [None]
  - TINNITUS [None]
